FAERS Safety Report 4343952-0 (Version None)
Quarter: 2004Q2

REPORT INFORMATION
  Report Type: 
  Country: None (occurrence: None)
  Receive Date: 20040422
  Receipt Date: 20040309
  Transmission Date: 20050107
  Serious: Yes (Life-Threatening, Hospitalization)
  Sender: FDA-Public Use
  Company Number: SE-ROCHE-361058

PATIENT
  Age: 41 Year
  Sex: Female

DRUGS (31)
  1. MYCOPHENOLATE MOFETIL [Suspect]
     Route: 042
     Dates: start: 20040222, end: 20040226
  2. MYCOPHENOLATE MOFETIL [Suspect]
     Route: 042
     Dates: start: 20040227, end: 20040305
  3. TACROLIMUS [Suspect]
     Route: 065
     Dates: start: 20040223, end: 20040224
  4. TACROLIMUS [Suspect]
     Route: 065
     Dates: start: 20040225
  5. TACROLIMUS [Suspect]
     Route: 065
     Dates: start: 20040226, end: 20040227
  6. TACROLIMUS [Suspect]
     Route: 065
     Dates: start: 20040228
  7. TACROLIMUS [Suspect]
     Route: 065
     Dates: start: 20040229, end: 20040304
  8. TACROLIMUS [Suspect]
     Route: 065
     Dates: start: 20040306
  9. TACROLIMUS [Suspect]
     Route: 065
     Dates: start: 20040307
  10. TACROLIMUS [Suspect]
     Route: 065
     Dates: start: 20040308
  11. PREDNISOLONE [Suspect]
     Route: 065
     Dates: start: 20040223
  12. PREDNISOLONE [Suspect]
     Route: 065
     Dates: start: 20040224
  13. PREDNISOLONE [Suspect]
     Route: 065
     Dates: start: 20040225
  14. PREDNISOLONE [Suspect]
     Route: 065
     Dates: start: 20040226
  15. PREDNISOLONE [Suspect]
     Route: 065
     Dates: start: 20040227, end: 20040303
  16. PREDNISOLONE [Suspect]
     Route: 065
     Dates: start: 20040304
  17. PREDNISOLONE [Suspect]
     Route: 065
     Dates: start: 20040305
  18. PREDNISOLONE [Suspect]
     Route: 065
     Dates: start: 20040306
  19. MEROPENEM [Concomitant]
     Dates: start: 20040222
  20. METRONIDAZOLE [Concomitant]
     Dates: start: 20040305
  21. AMFOTERICINE [Concomitant]
     Dates: start: 20040222
  22. VANCOMYCIN [Concomitant]
     Dates: start: 20040222
  23. ANTI-FACTOR XA [Concomitant]
     Dosage: 2550- 1500 E
     Dates: start: 20040223
  24. CALCIUM SANDOZ [Concomitant]
     Dates: start: 20030305
  25. FUROSEMIDE [Concomitant]
     Dosage: AS NEEDED
     Dates: start: 20040223
  26. ATENOLOL [Concomitant]
     Dosage: AS NEEDED
     Dates: start: 20040305
  27. PANTOPRAZOL [Concomitant]
     Dates: start: 20040222
  28. KETOGAN [Concomitant]
     Dosage: AS NEEDED
     Dates: start: 20040223
  29. METOPROLOL [Concomitant]
     Dosage: AS NEEDED
     Dates: start: 20040223
  30. PRECORTALON [Concomitant]
     Dates: start: 20040222
  31. ACTRAPID [Concomitant]
     Dosage: AS NEEDED
     Dates: start: 20040222, end: 20040224

REACTIONS (5)
  - JEJUNAL PERFORATION [None]
  - PERITONITIS [None]
  - POST PROCEDURAL HAEMORRHAGE [None]
  - VASCULAR OCCLUSION [None]
  - VENA CAVA THROMBOSIS [None]
